FAERS Safety Report 16956067 (Version 1)
Quarter: 2019Q4

REPORT INFORMATION
  Report Type: Spontaneous
  Country: US (occurrence: US)
  Receive Date: 20190904
  Receipt Date: 20190904
  Transmission Date: 20200122
  Serious: Yes (Hospitalization)
  Sender: FDA-Public Use
  Company Number: None

PATIENT
  Age: 29 Year
  Sex: Male
  Weight: 68 kg

DRUGS (4)
  1. NEULASTA [Suspect]
     Active Substance: PEGFILGRASTIM
     Dates: end: 20190814
  2. IFOSFAMIDE. [Suspect]
     Active Substance: IFOSFAMIDE
     Dates: end: 20190813
  3. TAXOL [Suspect]
     Active Substance: PACLITAXEL
     Dates: end: 20190810
  4. CISPLATIN. [Suspect]
     Active Substance: CISPLATIN
     Dates: end: 20190813

REACTIONS (2)
  - Infusion site thrombosis [None]
  - Infusion site extravasation [None]

NARRATIVE: CASE EVENT DATE: 20190826
